FAERS Safety Report 7531185-6 (Version None)
Quarter: 2011Q2

REPORT INFORMATION
  Report Type: 
  Country: None (occurrence: None)
  Receive Date: 20110527
  Receipt Date: 20110524
  Transmission Date: 20111010
  Serious: Yes (Death, Hospitalization)
  Sender: FDA-Public Use
  Company Number: 2011SP023910

PATIENT
  Age: 17 Year
  Sex: Male

DRUGS (8)
  1. POSACONAZOLE [Suspect]
     Indication: ANTIFUNGAL PROPHYLAXIS
     Dosage: 200 MG;TID
  2. VORIZONAZOLE [Concomitant]
  3. LIPOSOMAL APHOTERICIN B [Concomitant]
  4. CLINDMYCIN [Concomitant]
  5. PIPERACILLIN [Concomitant]
  6. CASPOFUNGIN ACETATE [Concomitant]
  7. TAZOBACTAM [Concomitant]
  8. TACROLIMUS [Concomitant]

REACTIONS (23)
  - PRODUCTIVE COUGH [None]
  - PERIORBITAL OEDEMA [None]
  - ACUTE TONSILLITIS [None]
  - SINUSITIS [None]
  - FEBRILE NEUTROPENIA [None]
  - ODYNOPHAGIA [None]
  - HEADACHE [None]
  - AMAUROSIS [None]
  - HEMIPARESIS [None]
  - COUGH [None]
  - PERITONSILLAR ABSCESS [None]
  - GENERAL PHYSICAL HEALTH DETERIORATION [None]
  - LYMPHADENOPATHY [None]
  - DYSPNOEA [None]
  - EAR PAIN [None]
  - EXOPHTHALMOS [None]
  - SCEDOSPORIUM INFECTION [None]
  - DYSARTHRIA [None]
  - ACUTE RESPIRATORY FAILURE [None]
  - RENAL FAILURE ACUTE [None]
  - DEPRESSED LEVEL OF CONSCIOUSNESS [None]
  - LEUKOPENIA [None]
  - ENCEPHALITIS BRAIN STEM [None]
